FAERS Safety Report 5584172-1 (Version None)
Quarter: 2008Q1

REPORT INFORMATION
  Report Type: 
  Country: None (occurrence: None)
  Receive Date: 20080103
  Receipt Date: 20071217
  Transmission Date: 20080703
  Serious: Yes (Death)
  Sender: FDA-Public Use
  Company Number: US021835

PATIENT
  Age: 23 Year
  Sex: Male

DRUGS (1)
  1. FENTANYL [Suspect]
     Dosage: ONCE
     Dates: end: 20070101

REACTIONS (1)
  - OVERDOSE [None]
